FAERS Safety Report 5739853-3 (Version None)
Quarter: 2008Q2

REPORT INFORMATION
  Report Type: 
  Country: None (occurrence: None)
  Receive Date: 20080513
  Receipt Date: 20080513
  Transmission Date: 20081010
  Serious: Yes (Life-Threatening, Hospitalization, Disabling)
  Sender: FDA-Public Use
  Company Number: None

PATIENT
  Sex: Female
  Weight: 66.6788 kg

DRUGS (1)
  1. CLINDAMYCIN HCL [Suspect]
     Indication: ABSCESS ORAL
     Dates: start: 20040316, end: 20040405

REACTIONS (8)
  - ABDOMINAL PAIN UPPER [None]
  - DIARRHOEA HAEMORRHAGIC [None]
  - ECONOMIC PROBLEM [None]
  - GASTRITIS [None]
  - INFLUENZA [None]
  - MEMORY IMPAIRMENT [None]
  - PAIN [None]
  - THERMAL BURN [None]
